FAERS Safety Report 9969997 (Version 1)
Quarter: 2014Q1

REPORT INFORMATION
  Report Type: Spontaneous
  Country: FR (occurrence: None)
  Receive Date: 20140304
  Receipt Date: 20140304
  Transmission Date: 20141002
  Serious: Yes (Life-Threatening, Hospitalization, Other)
  Sender: FDA-Public Use
  Company Number: ADR-2014-00318

PATIENT
  Age: 45 Year
  Sex: Male

DRUGS (2)
  1. BACLOFEN [Suspect]
     Indication: ALCOHOLISM
  2. DIAZEPAM [Suspect]
     Indication: ANXIETY DISORDER

REACTIONS (2)
  - Miosis [None]
  - Depressed level of consciousness [None]
